FAERS Safety Report 6166753-X (Version None)
Quarter: 2009Q2

REPORT INFORMATION
  Report Type: 
  Country: None (occurrence: None)
  Receive Date: 20090424
  Receipt Date: 20090416
  Transmission Date: 20091009
  Serious: Yes (Hospitalization)
  Sender: FDA-Public Use
  Company Number: GB-PFIZER INC-2009177350

PATIENT

DRUGS (2)
  1. DOXORUBICIN HCL [Suspect]
     Indication: BREAST CANCER
     Dosage: 100 MG, CYCLIC
     Route: 042
     Dates: start: 20090109
  2. CYCLOPHOSPHAMIDE [Suspect]
     Indication: BREAST CANCER
     Dosage: 1000 MG, CYCLIC
     Route: 042
     Dates: start: 20090109

REACTIONS (2)
  - BODY TEMPERATURE INCREASED [None]
  - OROPHARYNGEAL PAIN [None]
